FAERS Safety Report 14186956 (Version 1)
Quarter: 2017Q4

REPORT INFORMATION
  Report Type: Spontaneous
  Country: AU (occurrence: AU)
  Receive Date: 20171113
  Receipt Date: 20171113
  Transmission Date: 20180321
  Serious: Yes (Hospitalization, Disabling)
  Sender: FDA-Public Use
  Company Number: None

PATIENT
  Age: 37 Year
  Sex: Male
  Weight: 63 kg

DRUGS (4)
  1. SERITIDE [Concomitant]
  2. ZINC. [Concomitant]
     Active Substance: ZINC
  3. ELOCON [Suspect]
     Active Substance: MOMETASONE FUROATE
     Indication: ECZEMA
     Route: 061
  4. PRIMROSE OIL [Concomitant]

REACTIONS (5)
  - Drug withdrawal syndrome [None]
  - Nasopharyngitis [None]
  - Eczema [None]
  - Loss of personal independence in daily activities [None]
  - Impaired work ability [None]

NARRATIVE: CASE EVENT DATE: 20170601
